FAERS Safety Report 5787866-8 (Version None)
Quarter: 2008Q2

REPORT INFORMATION
  Report Type: 
  Country: None (occurrence: None)
  Receive Date: 20080625
  Receipt Date: 20080616
  Transmission Date: 20081010
  Serious: Yes (Hospitalization)
  Sender: FDA-Public Use
  Company Number: DE-JNJFOC-20060302392

PATIENT
  Sex: Female
  Weight: 71.4 kg

DRUGS (12)
  1. REMICADE [Suspect]
     Route: 042
  2. REMICADE [Suspect]
     Route: 042
  3. REMICADE [Suspect]
     Route: 042
  4. REMICADE [Suspect]
     Route: 042
  5. REMICADE [Suspect]
     Indication: CROHN'S DISEASE
     Route: 042
  6. CIPROFLOXACIN HCL [Concomitant]
     Indication: CROHN'S DISEASE
     Route: 065
  7. AZATHIOPRINE [Concomitant]
     Indication: CROHN'S DISEASE
     Route: 065
  8. PREDNISOLONE [Concomitant]
     Route: 065
  9. PREDNISOLONE [Concomitant]
     Indication: CROHN'S DISEASE
     Route: 065
  10. CALCIUM [Concomitant]
     Indication: OSTEOPOROSIS PROPHYLAXIS
     Route: 065
  11. VIT-D3 [Concomitant]
     Indication: OSTEOPOROSIS PROPHYLAXIS
     Route: 065
  12. LEVOTHYROXINE SODIUM [Concomitant]
     Indication: HYPOTHYROIDISM
     Route: 065

REACTIONS (2)
  - ABDOMINAL ABSCESS [None]
  - COLON CANCER [None]
